FAERS Safety Report 21886822 (Version 2)
Quarter: 2023Q2

REPORT INFORMATION
  Report Type: Spontaneous
  Country: SK (occurrence: SK)
  Receive Date: 20230119
  Receipt Date: 20230412
  Transmission Date: 20230722
  Serious: Yes (Hospitalization)
  Sender: FDA-Public Use
  Company Number: SK-ELI_LILLY_AND_COMPANY-SK202301003977

PATIENT
  Age: 50 Year
  Sex: Female
  Weight: 80 kg

DRUGS (15)
  1. LYUMJEV [Suspect]
     Active Substance: INSULIN LISPRO-AABC
     Indication: Latent autoimmune diabetes in adults
     Dosage: 10 INTERNATIONAL UNIT, EACH MORNING
     Route: 058
     Dates: start: 2020
  2. LYUMJEV [Suspect]
     Active Substance: INSULIN LISPRO-AABC
     Dosage: 6 INTERNATIONAL UNIT, LUNCH
     Route: 058
     Dates: start: 2020
  3. LYUMJEV [Suspect]
     Active Substance: INSULIN LISPRO-AABC
     Dosage: 5 INTERNATIONAL UNIT, EACH EVENING
     Route: 058
     Dates: start: 2020
  4. LYUMJEV [Suspect]
     Active Substance: INSULIN LISPRO-AABC
     Dosage: 13 INTERNATIONAL UNIT, EACH MORNING
     Route: 058
     Dates: start: 20220405
  5. LYUMJEV [Suspect]
     Active Substance: INSULIN LISPRO-AABC
     Dosage: 7 INTERNATIONAL UNIT, DAILY, NOON
     Route: 058
     Dates: start: 20220405
  6. LYUMJEV [Suspect]
     Active Substance: INSULIN LISPRO-AABC
     Dosage: 6 INTERNATIONAL UNIT, DAILY NIGHT
     Route: 058
     Dates: start: 20220405
  7. INSULIN HUMAN [Concomitant]
     Active Substance: INSULIN HUMAN
     Indication: Latent autoimmune diabetes in adults
     Dosage: 3 U, TID
  8. SEMGLEE [INSULIN GLARGINE] [Concomitant]
     Indication: Latent autoimmune diabetes in adults
     Dosage: 6 INTERNATIONAL UNIT, DAILY
  9. SEMGLEE [INSULIN GLARGINE] [Concomitant]
     Dosage: 4 INTERNATIONAL UNIT, DAILY
  10. RIFAXIMIN [Concomitant]
     Active Substance: RIFAXIMIN
     Indication: Product used for unknown indication
  11. CARVEDILOL [Concomitant]
     Active Substance: CARVEDILOL
     Indication: Product used for unknown indication
  12. SIMVASTATIN [Concomitant]
     Active Substance: SIMVASTATIN
     Indication: Product used for unknown indication
  13. DUPHALAC [Concomitant]
     Active Substance: LACTULOSE
     Indication: Product used for unknown indication
  14. OMEPRAZOLE [Concomitant]
     Active Substance: OMEPRAZOLE
     Indication: Product used for unknown indication
  15. CHOLECALCIFEROL [Concomitant]
     Active Substance: CHOLECALCIFEROL
     Indication: Product used for unknown indication

REACTIONS (1)
  - Hepatocellular carcinoma [Unknown]

NARRATIVE: CASE EVENT DATE: 20221201
